FAERS Safety Report 6286265-2 (Version None)
Quarter: 2009Q3

REPORT INFORMATION
  Report Type: 
  Country: None (occurrence: None)
  Receive Date: 20090728
  Receipt Date: 20090717
  Transmission Date: 20100115
  Serious: Yes (Hospitalization)
  Sender: FDA-Public Use
  Company Number: JP-PFIZER INC-2009243743

PATIENT
  Age: 63 Year

DRUGS (7)
  1. SUNITINIB MALATE [Suspect]
     Indication: GASTROINTESTINAL STROMAL TUMOUR
     Dosage: 50 MG, 1X/DAY
     Route: 048
     Dates: start: 20090327, end: 20090604
  2. TRANDOLAPRIL [Concomitant]
     Dosage: UNK
     Route: 048
  3. RIBALL [Concomitant]
     Dosage: UNK
     Route: 048
  4. TRICOR [Concomitant]
     Dosage: UNK
     Route: 048
  5. SEPAMIT [Concomitant]
     Dosage: UNK
     Route: 048
     Dates: start: 20090409
  6. MYSER [Concomitant]
     Dates: start: 20090330, end: 20090430
  7. SOLULACT [Concomitant]
     Route: 042
     Dates: start: 20090501, end: 20090502

REACTIONS (1)
  - HYPOGLYCAEMIA [None]
